FAERS Safety Report 13938649 (Version 1)
Quarter: 2017Q3

REPORT INFORMATION
  Report Type: Spontaneous
  Country: US (occurrence: US)
  Receive Date: 20170906
  Receipt Date: 20170906
  Transmission Date: 20171127
  Serious: No
  Sender: FDA-Public Use
  Company Number: US-MACLEODS PHARMACEUTICALS US LTD-MAC2017005748

PATIENT

DRUGS (1)
  1. LOSARTAN POTASSIUM 100MG [Suspect]
     Active Substance: LOSARTAN POTASSIUM
     Indication: HYPERTENSION
     Dosage: 100 MG, UNK
     Route: 048

REACTIONS (5)
  - Restlessness [Recovering/Resolving]
  - Product substitution issue [Recovering/Resolving]
  - Lip ulceration [Recovering/Resolving]
  - Pain in extremity [Recovering/Resolving]
  - Peripheral swelling [Recovering/Resolving]
